FAERS Safety Report 6348955-2 (Version None)
Quarter: 2009Q3

REPORT INFORMATION
  Report Type: 
  Country: None (occurrence: None)
  Receive Date: 20090911
  Receipt Date: 20090831
  Transmission Date: 20100115
  Serious: Yes (Hospitalization, Other)
  Sender: FDA-Public Use
  Company Number: JP-PFIZER INC-2009263415

PATIENT
  Age: 61 Year

DRUGS (2)
  1. XALATAN [Suspect]
     Route: 031
  2. ALCOHOL [Interacting]

REACTIONS (3)
  - DRUG INTERACTION [None]
  - EYE OPERATION [None]
  - INTRAOCULAR PRESSURE INCREASED [None]
